FAERS Safety Report 15757167 (Version 1)
Quarter: 2018Q4

REPORT INFORMATION
  Report Type: Spontaneous
  Country: US (occurrence: US)
  Receive Date: 20181224
  Receipt Date: 20181224
  Transmission Date: 20190205
  Serious: Yes (Hospitalization)
  Sender: FDA-Public Use
  Company Number: None

PATIENT
  Age: 62 Year
  Sex: Female

DRUGS (5)
  1. HYDROCO/APAP TAB 5-325MG [Concomitant]
     Active Substance: ACETAMINOPHEN\HYDROCODONE
     Dates: start: 20181214
  2. HYDROCHLOROT TAB 25MG [Concomitant]
     Dates: start: 20181101
  3. ESTRADIOL TAB 0.5MG [Concomitant]
     Active Substance: ESTRADIOL
     Dates: start: 20181101
  4. XELJANZ XR [Suspect]
     Active Substance: TOFACITINIB CITRATE
     Indication: RHEUMATOID ARTHRITIS
     Route: 048
  5. VITAMIN D CAP 50000 [Concomitant]
     Dates: start: 20181101

REACTIONS (2)
  - Fall [None]
  - Foot fracture [None]

NARRATIVE: CASE EVENT DATE: 20181215
